FAERS Safety Report 9747934 (Version 2)
Quarter: 2013Q4

REPORT INFORMATION
  Report Type: Spontaneous
  Country: US (occurrence: US)
  Receive Date: 20131212
  Receipt Date: 20131212
  Transmission Date: 20140711
  Serious: Yes (Other)
  Sender: FDA-Public Use
  Company Number: US-TEVA-388348USA

PATIENT
  Age: 31 Year
  Sex: Female
  Weight: 49.03 kg

DRUGS (3)
  1. PARAGARD 380A [Suspect]
     Indication: CONTRACEPTION
     Route: 015
     Dates: start: 20121003
  2. ZOLOFT [Concomitant]
     Dosage: 1 TABLET ONCE DAILY FOR 30 DAYS
     Route: 048
  3. NEXA SELECT [Concomitant]
     Route: 048
     Dates: start: 20111207

REACTIONS (2)
  - Device dislocation [Not Recovered/Not Resolved]
  - Abdominal pain [Unknown]
